FAERS Safety Report 8000796 (Version 4)
Quarter: 2014Q2

REPORT INFORMATION
  Report Type: Spontaneous
  Country: US (occurrence: US)
  Receive Date: 20110621
  Receipt Date: 20140506
  Transmission Date: 20141212
  Serious: No
  Sender: FDA-Public Use
  Company Number: US-ASTRAZENECA-2010SE55881

PATIENT
  Age: 81 Year
  Sex: Female

DRUGS (6)
  1. PULMICORT RESPULES [Suspect]
     Route: 055
  2. SYMBICORT [Suspect]
     Indication: ASTHMA
     Dosage: 160 2 PUFFS BID
     Route: 055
  3. LISINOPRIL [Suspect]
     Indication: HYPERTENSION
     Route: 048
  4. CRESTOR [Suspect]
     Indication: BLOOD CHOLESTEROL INCREASED
     Route: 048
     Dates: start: 20140417
  5. SYNTHROID [Concomitant]
     Indication: THYROID DISORDER
  6. PAXIL [Concomitant]
     Indication: PANIC ATTACK

REACTIONS (11)
  - Malaise [Unknown]
  - Vascular rupture [Unknown]
  - Blood cholesterol increased [Unknown]
  - Arthritis [Unknown]
  - Asthma [Unknown]
  - Mobility decreased [Unknown]
  - Memory impairment [Unknown]
  - Bone pain [Unknown]
  - Body height decreased [Unknown]
  - Panic attack [Unknown]
  - Drug dose omission [Unknown]
